FAERS Safety Report 5314831-7 (Version None)
Quarter: 2007Q2

REPORT INFORMATION
  Report Type: 
  Country: None (occurrence: None)
  Receive Date: 20070502
  Receipt Date: 20070420
  Transmission Date: 20071010
  Serious: Yes (Death, Hospitalization)
  Sender: FDA-Public Use
  Company Number: CA-MERCK-0701CAN00234

PATIENT
  Age: 70 Year
  Sex: Female

DRUGS (3)
  1. COZAAR [Suspect]
     Indication: HYPERTENSION
     Route: 048
     Dates: start: 20060523, end: 20060620
  2. COZAAR [Suspect]
     Route: 048
     Dates: start: 20060620, end: 20070116
  3. PERINDOPRIL ERBUMINE [Concomitant]
     Indication: HYPERTENSION
     Route: 065
     Dates: start: 20060130, end: 20060523

REACTIONS (4)
  - DEATH [None]
  - INSOMNIA [None]
  - LYMPHOMA [None]
  - PRURITUS [None]
